FAERS Safety Report 12741755 (Version 5)
Quarter: 2018Q4

REPORT INFORMATION
  Report Type: Spontaneous
  Country: US (occurrence: US)
  Receive Date: 20160914
  Receipt Date: 20181015
  Transmission Date: 20190204
  Serious: No
  Sender: FDA-Public Use
  Company Number: US-PFIZER INC-2016429657

PATIENT
  Age: 84 Year
  Sex: Female
  Weight: 57.14 kg

DRUGS (2)
  1. LYRICA [Suspect]
     Active Substance: PREGABALIN
     Dosage: UNK (JUST TAKING 2 A DAY)
  2. LYRICA [Suspect]
     Active Substance: PREGABALIN
     Indication: FIBROMYALGIA
     Dosage: 50 MG, 4X/DAY, AFTER EATING (ONE IN MORNING, ONE AT AFTERNOON AND TWO AT NIGHT)
     Route: 048

REACTIONS (7)
  - Insomnia [Unknown]
  - Intentional product misuse [Unknown]
  - Pruritus generalised [Unknown]
  - Pain [Unknown]
  - Product use issue [Unknown]
  - Headache [Unknown]
  - Pain in extremity [Unknown]
